FAERS Safety Report 22113945 (Version 1)
Quarter: 2023Q1

REPORT INFORMATION
  Report Type: Spontaneous
  Country: PL (occurrence: PL)
  Receive Date: 20230320
  Receipt Date: 20230320
  Transmission Date: 20230418
  Serious: Yes (Hospitalization)
  Sender: FDA-Public Use
  Company Number: PL-JNJFOC-20230332506

PATIENT
  Age: 2 Decade
  Sex: Female

DRUGS (1)
  1. ACETAMINOPHEN [Suspect]
     Active Substance: ACETAMINOPHEN
     Indication: Product used for unknown indication
     Route: 048
     Dates: start: 201812

REACTIONS (2)
  - Intentional product misuse [Unknown]
  - Suicide attempt [Unknown]

NARRATIVE: CASE EVENT DATE: 20181201
